FAERS Safety Report 5473159-5 (Version None)
Quarter: 2007Q4

REPORT INFORMATION
  Report Type: 
  Country: None (occurrence: None)
  Receive Date: 20071001
  Receipt Date: 20070920
  Transmission Date: 20080405
  Serious: Yes (Hospitalization)
  Sender: FDA-Public Use
  Company Number: JP-JNJFOC-20070105621

PATIENT
  Sex: Female
  Weight: 46 kg

DRUGS (11)
  1. REMICADE [Suspect]
     Route: 042
  2. REMICADE [Suspect]
     Route: 042
  3. REMICADE [Suspect]
     Route: 042
  4. REMICADE [Suspect]
     Route: 042
  5. REMICADE [Suspect]
     Indication: RHEUMATOID ARTHRITIS
     Route: 042
  6. RHEUMATREX [Suspect]
     Indication: RHEUMATOID ARTHRITIS
     Route: 048
  7. PREDONINE [Concomitant]
     Indication: RHEUMATOID ARTHRITIS
     Route: 048
  8. FOLIAMIN [Concomitant]
     Indication: PROPHYLAXIS
     Route: 048
  9. SELBEX [Concomitant]
     Indication: GASTRITIS
     Route: 048
  10. SIMAVASTATIN [Concomitant]
     Indication: HYPERLIPIDAEMIA
     Route: 048
  11. TAKA-DIASTASE [Concomitant]
     Route: 030

REACTIONS (1)
  - DISSEMINATED TUBERCULOSIS [None]
